FAERS Safety Report 13652141 (Version 1)
Quarter: 2017Q2

REPORT INFORMATION
  Report Type: Report from Study
  Country: KR (occurrence: KR)
  Receive Date: 20170614
  Receipt Date: 20170614
  Transmission Date: 20170830
  Serious: Yes (Hospitalization)
  Sender: FDA-Public Use
  Company Number: KR-AMGEN-KORCT2013023330

PATIENT
  Age: 67 Year
  Sex: Female
  Weight: 55.2 kg

DRUGS (18)
  1. AMG 386 [Suspect]
     Active Substance: TREBANANIB
     Indication: MALIGNANT PERITONEAL NEOPLASM
     Dosage: 900 MG, QWK
     Route: 065
     Dates: start: 20120917
  2. VITIS VINIFERA EXTRACT [Concomitant]
     Indication: PROPHYLAXIS
     Dosage: 150 MG, UNK
     Route: 048
     Dates: start: 20120903, end: 20130205
  3. CHLORPHENIRAMINE MALEATE. [Concomitant]
     Active Substance: CHLORPHENIRAMINE MALEATE
     Dosage: 4 MG, UNK
     Route: 042
     Dates: start: 20120917, end: 20121211
  4. ZALTOPROFEN [Concomitant]
     Active Substance: ZALTOPROFEN
     Dosage: 80 MG, UNK
     Route: 048
     Dates: start: 20120902, end: 20121127
  5. RAMOSETRON HYDROCHLORIDE [Concomitant]
     Active Substance: RAMOSETRON HYDROCHLORIDE
     Dosage: 0.3 MG, UNK
     Route: 042
     Dates: start: 20120917, end: 20121211
  6. SELENIUM [Concomitant]
     Active Substance: SELENIUM
     Dosage: 100 MUG, UNK
     Route: 030
     Dates: start: 20120830, end: 20120918
  7. DEXAMETHASONE. [Concomitant]
     Active Substance: DEXAMETHASONE
     Dosage: 20 MG, UNK
     Route: 042
     Dates: start: 20120917, end: 20121211
  8. BARIUM SULFATE [Concomitant]
     Active Substance: BARIUM SULFATE
     Dosage: 450 ML, UNK
     Route: 048
     Dates: start: 20120913, end: 20121113
  9. FEROBA [Concomitant]
     Active Substance: FERROUS SULFATE\PROTEASE
     Dosage: UNK
     Route: 048
     Dates: start: 20120918, end: 20130320
  10. MEGESTROL [Concomitant]
     Active Substance: MEGESTROL
     Dosage: 40 MG, UNK
     Route: 048
     Dates: start: 20120911, end: 20121009
  11. PRIMENE [Concomitant]
     Active Substance: AMINO ACIDS
     Dosage: 250 MG, UNK
     Route: 042
     Dates: start: 20120915, end: 20120915
  12. CALCIUM DOBESILATE [Concomitant]
     Active Substance: CALCIUM DOBESILATE
     Indication: PROPHYLAXIS
     Dosage: UNK
  13. CARBOPLATIN. [Concomitant]
     Active Substance: CARBOPLATIN
     Indication: MALIGNANT PERITONEAL NEOPLASM
     Dosage: 557 MG, UNK
     Route: 042
     Dates: start: 20120917
  14. FAMOTIDINE. [Concomitant]
     Active Substance: FAMOTIDINE
     Dosage: 20 MG, UNK
     Route: 042
     Dates: start: 20120917, end: 20121211
  15. NEURONTIN [Concomitant]
     Active Substance: GABAPENTIN
     Dosage: 200 MG, UNK
     Route: 048
     Dates: start: 20121031, end: 20130103
  16. PACLITAXEL. [Concomitant]
     Active Substance: PACLITAXEL
     Indication: MALIGNANT PERITONEAL NEOPLASM
     Dosage: 280 MG, UNK
     Route: 042
     Dates: start: 20120917
  17. PHAZYME [Concomitant]
     Active Substance: DIMETHICONE 410
     Dosage: UNK
     Route: 048
     Dates: start: 20120902, end: 20121211
  18. IRON SUCROSE [Concomitant]
     Active Substance: IRON SUCROSE
     Dosage: 200 MG, UNK
     Route: 030
     Dates: start: 20120912, end: 20120915

REACTIONS (1)
  - Generalised oedema [Recovered/Resolved]

NARRATIVE: CASE EVENT DATE: 20121204
